FAERS Safety Report 4263826-3 (Version None)
Quarter: 2004Q1

REPORT INFORMATION
  Report Type: 
  Country: None (occurrence: None)
  Receive Date: 20040105
  Receipt Date: 20040105
  Transmission Date: 20041129
  Serious: Yes (Other)
  Sender: FDA-Public Use
  Company Number: None

PATIENT
  Age: 44 Year
  Sex: Male
  Weight: 80.7403 kg

DRUGS (2)
  1. PEG-INTRON [Suspect]
     Indication: HEPATITIS C
     Dosage: .05CC WEEKLY
  2. REBETOL [Suspect]
     Dosage: 1000 MG DAILY

REACTIONS (10)
  - ANOREXIA [None]
  - ARTHRALGIA [None]
  - CHILLS [None]
  - FATIGUE [None]
  - HEADACHE [None]
  - HYPERHIDROSIS [None]
  - MIGRAINE [None]
  - MYALGIA [None]
  - NAUSEA [None]
  - VISION BLURRED [None]
